FAERS Safety Report 4823389-8 (Version None)
Quarter: 2005Q4

REPORT INFORMATION
  Report Type: 
  Country: None (occurrence: None)
  Receive Date: 20051107
  Receipt Date: 20051024
  Transmission Date: 20060501
  Serious: Yes (Hospitalization, Other)
  Sender: FDA-Public Use
  Company Number: 2005BH002348

PATIENT
  Age: 84 Year
  Sex: Female
  Weight: 42 kg

DRUGS (4)
  1. EXTRANEAL [Suspect]
     Indication: RENAL FAILURE CHRONIC
     Dosage: 1500 ML; EVERY DAY; IP
     Route: 033
     Dates: start: 20050928, end: 20051010
  2. DIANEAL PD2 ULTRABAG [Concomitant]
  3. WARFARIN [Concomitant]
  4. DIGITOXIN TAB [Concomitant]

REACTIONS (5)
  - DRUG EFFECT DECREASED [None]
  - EOSINOPHIL COUNT INCREASED [None]
  - GASTROINTESTINAL DISORDER [None]
  - MEDICAL DEVICE COMPLICATION [None]
  - PYREXIA [None]
